FAERS Safety Report 5744507-3 (Version None)
Quarter: 2008Q2

REPORT INFORMATION
  Report Type: 
  Country: None (occurrence: None)
  Receive Date: 20080520
  Receipt Date: 20080416
  Transmission Date: 20081010
  Serious: No
  Sender: FDA-Public Use
  Company Number: US-BAYER-200611667BWH

PATIENT
  Age: 76 Year
  Sex: Male
  Weight: 84 kg

DRUGS (7)
  1. NEXAVAR [Suspect]
     Indication: RENAL CELL CARCINOMA
     Dosage: TOTAL DAILY DOSE: 800 MG  UNIT DOSE: 200 MG
     Route: 048
     Dates: start: 20060222, end: 20060304
  2. NEXAVAR [Suspect]
     Dosage: TOTAL DAILY DOSE: 400 MG  UNIT DOSE: 200 MG
     Route: 048
     Dates: start: 20060313, end: 20060329
  3. NEXAVAR [Suspect]
     Dosage: TOTAL DAILY DOSE: 200 MG  UNIT DOSE: 200 MG
     Route: 048
     Dates: start: 20060330, end: 20060815
  4. NEXAVAR [Suspect]
     Dosage: TOTAL DAILY DOSE: 200 MG  UNIT DOSE: 200 MG
     Route: 048
     Dates: start: 20060816
  5. NEXAVAR [Suspect]
     Dosage: TOTAL DAILY DOSE: 200 MG  UNIT DOSE: 200 MG
     Route: 048
  6. WYGESIC [Concomitant]
     Indication: BACK PAIN
  7. XANAX [Concomitant]

REACTIONS (18)
  - ADVERSE EVENT [None]
  - ANORECTAL DISCOMFORT [None]
  - BLISTER [None]
  - DIARRHOEA [None]
  - DYSGEUSIA [None]
  - DYSPHONIA [None]
  - ERYTHEMA [None]
  - GLOSSODYNIA [None]
  - ORAL PAIN [None]
  - PAIN IN EXTREMITY [None]
  - PAIN OF SKIN [None]
  - PERINEAL PAIN [None]
  - PRURITUS [None]
  - RECTAL LESION [None]
  - SKIN EXFOLIATION [None]
  - SKIN LESION [None]
  - TONGUE BLISTERING [None]
  - WOUND [None]
